FAERS Safety Report 22915117 (Version 4)
Quarter: 2023Q4

REPORT INFORMATION
  Report Type: Spontaneous
  Country: IE (occurrence: IE)
  Receive Date: 20230907
  Receipt Date: 20231012
  Transmission Date: 20240109
  Serious: Yes (Other)
  Sender: FDA-Public Use
  Company Number: IE-CELLTRION INC.-2023IE017452

PATIENT

DRUGS (2)
  1. ADALIMUMAB [Suspect]
     Active Substance: ADALIMUMAB
     Indication: Hidradenitis
     Dosage: UNK
     Route: 058
  2. ADALIMUMAB [Suspect]
     Active Substance: ADALIMUMAB
     Indication: Crohn^s disease
     Dosage: UNK, DOSAGE1 : UNIT=NOT AVAILABLE
     Route: 065

REACTIONS (5)
  - Condition aggravated [Unknown]
  - Crohn^s disease [Unknown]
  - Hidradenitis [Unknown]
  - Testis cancer [Not Recovered/Not Resolved]
  - Testis cancer recurrent [Unknown]
